FAERS Safety Report 19665916 (Version 1)
Quarter: 2021Q3

REPORT INFORMATION
  Report Type: Spontaneous
  Country: PR (occurrence: PR)
  Receive Date: 20210806
  Receipt Date: 20210806
  Transmission Date: 20211014
  Serious: Yes (Hospitalization)
  Sender: FDA-Public Use
  Company Number: None

PATIENT
  Age: 66 Year
  Sex: Male
  Weight: 119.25 kg

DRUGS (2)
  1. REGEN?COV [Suspect]
     Active Substance: CASIRIVIMAB\IMDEVIMAB
     Indication: SARS-COV-2 TEST POSITIVE
     Route: 042
     Dates: start: 20210805, end: 20210805
  2. REGEN?COV [Suspect]
     Active Substance: CASIRIVIMAB\IMDEVIMAB
     Indication: SARS-COV-2 TEST POSITIVE
     Route: 042
     Dates: start: 20210805, end: 20210805

REACTIONS (3)
  - Chills [None]
  - Tremor [None]
  - Oxygen saturation decreased [None]

NARRATIVE: CASE EVENT DATE: 20210805
